FAERS Safety Report 7881558-7 (Version None)
Quarter: 2011Q4

REPORT INFORMATION
  Report Type: 
  Country: None (occurrence: None)
  Receive Date: 20111101
  Receipt Date: 20110601
  Transmission Date: 20120403
  Serious: No
  Sender: FDA-Public Use
  Company Number: US-AMGEN-USASP2011028286

PATIENT
  Age: 49 Year
  Sex: Female

DRUGS (1)
  1. ENBREL [Suspect]
     Indication: ANKYLOSING SPONDYLITIS
     Dosage: 50 MG, QWK
     Dates: start: 20080101

REACTIONS (12)
  - ANKYLOSING SPONDYLITIS [None]
  - SKIN HAEMORRHAGE [None]
  - DIARRHOEA [None]
  - FLUSHING [None]
  - DRY SKIN [None]
  - INCORRECT STORAGE OF DRUG [None]
  - INFLUENZA LIKE ILLNESS [None]
  - SKIN EXFOLIATION [None]
  - PYREXIA [None]
  - HYPERHIDROSIS [None]
  - CHILLS [None]
  - SKIN FISSURES [None]
